FAERS Safety Report 4748240-6 (Version None)
Quarter: 2005Q3

REPORT INFORMATION
  Report Type: 
  Country: None (occurrence: None)
  Receive Date: 20050818
  Receipt Date: 20041219
  Transmission Date: 20060218
  Serious: Yes (Other)
  Sender: FDA-Public Use
  Company Number: PHBS2004IL17027

PATIENT
  Age: 40 Year
  Sex: Female

DRUGS (1)
  1. TERBINAFINE [Suspect]
     Indication: NAIL TINEA
     Dosage: 250 MG/D
     Route: 048
     Dates: start: 20041015, end: 20041210

REACTIONS (3)
  - CAESAREAN SECTION [None]
  - DRUG EXPOSURE DURING PREGNANCY [None]
  - NORMAL NEWBORN [None]
